FAERS Safety Report 12261727 (Version 1)
Quarter: 2016Q2

REPORT INFORMATION
  Report Type: Spontaneous
  Country: US (occurrence: US)
  Receive Date: 20160413
  Receipt Date: 20160413
  Transmission Date: 20160815
  Serious: No
  Sender: FDA-Public Use
  Company Number: US-AUROBINDO-AUR-APL-2015-08688

PATIENT
  Age: 66 Year
  Sex: Male

DRUGS (4)
  1. ATORVASTATIN [Concomitant]
     Active Substance: ATORVASTATIN
     Indication: PRODUCT USED FOR UNKNOWN INDICATION
     Dosage: 40 MG, UNK
     Route: 065
  2. BALSALAZIDE DISODIUM. [Concomitant]
     Active Substance: BALSALAZIDE DISODIUM
     Indication: PRODUCT USED FOR UNKNOWN INDICATION
     Dosage: 750 MG, UNK
     Route: 065
  3. METFORMIN [Suspect]
     Active Substance: METFORMIN HYDROCHLORIDE
     Indication: TYPE 2 DIABETES MELLITUS
     Dosage: 10 MG, TWO TIMES A DAY
     Route: 065
     Dates: start: 201412
  4. LISINOPRIL. [Concomitant]
     Active Substance: LISINOPRIL
     Indication: PRODUCT USED FOR UNKNOWN INDICATION
     Dosage: 20-125
     Route: 065

REACTIONS (8)
  - Decreased appetite [Unknown]
  - Diarrhoea [Unknown]
  - Gastrointestinal disorder [Recovered/Resolved]
  - Vertigo [Unknown]
  - Dizziness [Unknown]
  - Weight decreased [Unknown]
  - Muscle spasms [Unknown]
  - Anxiety [Unknown]

NARRATIVE: CASE EVENT DATE: 201412
